FAERS Safety Report 8176982-1 (Version None)
Quarter: 2012Q1

REPORT INFORMATION
  Report Type: 
  Country: None (occurrence: None)
  Receive Date: 20120301
  Receipt Date: 20120110
  Transmission Date: 20120608
  Serious: Yes (Hospitalization)
  Sender: FDA-Public Use
  Company Number: CA-JNJFOC-20110704154

PATIENT
  Weight: 91 kg

DRUGS (15)
  1. RENEDIL [Concomitant]
  2. CALCIUM [Concomitant]
  3. CRESTOR [Concomitant]
  4. FLUVOXAMINE MALEATE [Concomitant]
  5. FOLIC ACID [Concomitant]
  6. REMICADE [Suspect]
     Indication: CROHN'S DISEASE
     Route: 042
     Dates: start: 20090801
  7. METHOTREXATE [Concomitant]
  8. HYDROMORPH [Concomitant]
  9. FERROUS SULFATE TAB [Concomitant]
  10. ALTACE [Concomitant]
  11. BETOPTIC [Concomitant]
  12. GLICLAZIDE [Concomitant]
  13. HYZAAR [Concomitant]
  14. ATENOLOL [Concomitant]
  15. MELOXICAM [Concomitant]

REACTIONS (3)
  - ARTHROPATHY [None]
  - HIP SURGERY [None]
  - LIGAMENT DISORDER [None]
